FAERS Safety Report 10962222 (Version 1)
Quarter: 2015Q1

REPORT INFORMATION
  Report Type: Spontaneous
  Country: US (occurrence: US)
  Receive Date: 20150327
  Receipt Date: 20150327
  Transmission Date: 20150721
  Serious: Yes (Hospitalization)
  Sender: FDA-Public Use
  Company Number: US-PFIZER INC-2015107622

PATIENT
  Age: 68 Year
  Sex: Male
  Weight: 65.76 kg

DRUGS (1)
  1. RAPAMUNE [Suspect]
     Active Substance: SIROLIMUS
     Indication: LIVER TRANSPLANT
     Dosage: 1 MG, 1X/DAY

REACTIONS (3)
  - Drug ineffective [Recovered/Resolved]
  - Liver function test abnormal [Recovered/Resolved]
  - Product use issue [Unknown]
